FAERS Safety Report 7153075-3 (Version None)
Quarter: 2010Q4

REPORT INFORMATION
  Report Type: 
  Country: None (occurrence: None)
  Receive Date: 20101130
  Receipt Date: 20100329
  Transmission Date: 20110411
  Serious: Yes (Hospitalization, Other)
  Sender: FDA-Public Use
  Company Number: 2010SP019235

PATIENT
  Age: 29 Year
  Sex: Female
  Weight: 99.7913 kg

DRUGS (2)
  1. NUVARING [Suspect]
     Indication: CONTRACEPTION
     Dates: start: 20070101, end: 20080401
  2. COUMADIN [Suspect]
     Indication: DEEP VEIN THROMBOSIS
     Dates: start: 20080101, end: 20090101

REACTIONS (12)
  - ABORTION SPONTANEOUS [None]
  - ASTHMA [None]
  - CYST REMOVAL [None]
  - DEEP VEIN THROMBOSIS [None]
  - DRUG EXPOSURE BEFORE PREGNANCY [None]
  - FALL [None]
  - INFECTION [None]
  - JOINT SPRAIN [None]
  - MIGRAINE [None]
  - PAIN [None]
  - PREGNANCY [None]
  - PULMONARY EMBOLISM [None]
